FAERS Safety Report 21572496 (Version 1)
Quarter: 2022Q4

REPORT INFORMATION
  Report Type: Spontaneous
  Country: PT (occurrence: PT)
  Receive Date: 20221109
  Receipt Date: 20221109
  Transmission Date: 20230113
  Serious: Yes (Hospitalization, Other)
  Sender: FDA-Public Use
  Company Number: PT-FreseniusKabi-FK202214948

PATIENT
  Age: 65 Year
  Sex: Male

DRUGS (2)
  1. LINEZOLID [Suspect]
     Active Substance: LINEZOLID
     Indication: Antibiotic therapy
     Route: 065
  2. TAPENTADOL [Suspect]
     Active Substance: TAPENTADOL
     Indication: Product used for unknown indication

REACTIONS (2)
  - Drug interaction [Unknown]
  - Herpes simplex encephalitis [Unknown]
